FAERS Safety Report 21652754 (Version 1)
Quarter: 2022Q4

REPORT INFORMATION
  Report Type: Spontaneous
  Country: US (occurrence: None)
  Receive Date: 20221126
  Receipt Date: 20221126
  Transmission Date: 20230112
  Serious: No
  Sender: FDA-Public Use
  Company Number: None

PATIENT
  Age: 44 Year
  Sex: Female
  Weight: 59.01 kg

DRUGS (27)
  1. WELIREG [Suspect]
     Active Substance: BELZUTIFAN
     Indication: Von Hippel-Lindau disease
     Dosage: FREQUENCY : DAILY;?
     Route: 048
  2. BUSPIRONE HCI [Concomitant]
  3. DAYSEE [Concomitant]
  4. DESVENLAFAXINE DIAZEPAM [Concomitant]
  5. DICLOFENAC SODIUM [Concomitant]
  6. ECHINACEA EXTRACT [Concomitant]
  7. ELDERBERRY ZINC/VIT [Concomitant]
  8. C/IMMUNE [Concomitant]
  9. FRANKINCENSE UPLIFTING [Concomitant]
  10. GABAPENTIN [Concomitant]
  11. GINGER EXTRACT [Concomitant]
  12. GINKOBA [Concomitant]
  13. LEMON EXTRACT [Concomitant]
  14. MULTI VITAMIN DAILY [Concomitant]
  15. ONDANSETRON [Concomitant]
  16. OXYCODONE-ACETAMINOPHEN [Concomitant]
  17. PEPPERMINT OIL [Concomitant]
  18. PROBIOTIC (LACTOBACILLUS) [Concomitant]
  19. PROMETHAZINE HCL [Concomitant]
  20. REXULTI [Concomitant]
     Active Substance: BREXPIPRAZOLE
  21. RIZATRIPTAN BENZOATE [Concomitant]
  22. TOPIRAMATE [Concomitant]
  23. TRAZODONE HCI [Concomitant]
  24. TUMERIC + TAMARIND BLEND [Concomitant]
  25. VITAMIN B COMPLEX [Concomitant]
  26. VITAMIN C [Concomitant]
     Active Substance: ASCORBIC ACID
  27. ZOLPIDEM TARTRATE [Concomitant]

REACTIONS (2)
  - Arrhythmia [None]
  - Palpitations [None]
